FAERS Safety Report 5667345-9 (Version None)
Quarter: 2008Q1

REPORT INFORMATION
  Report Type: 
  Country: None (occurrence: None)
  Receive Date: 20080315
  Receipt Date: 20071228
  Transmission Date: 20080703
  Serious: No
  Sender: FDA-Public Use
  Company Number: US-ABBOTT-08P-163-0434350-00

PATIENT
  Sex: Male
  Weight: 72.64 kg

DRUGS (3)
  1. HUMIRA [Suspect]
     Indication: RHEUMATOID ARTHRITIS
     Route: 058
     Dates: start: 20060101
  2. HUMIRA [Suspect]
     Route: 058
     Dates: start: 20070101
  3. HUMIRA [Suspect]
     Route: 058
     Dates: start: 20071210

REACTIONS (4)
  - ACCIDENTAL NEEDLE STICK [None]
  - GASTROENTERITIS SALMONELLA [None]
  - INFLUENZA LIKE ILLNESS [None]
  - PAIN [None]
